FAERS Safety Report 10563510 (Version 1)
Quarter: 2014Q4

REPORT INFORMATION
  Report Type: Report from Study
  Country: CA (occurrence: CA)
  Receive Date: 20141104
  Receipt Date: 20141104
  Transmission Date: 20150529
  Serious: Yes (Other)
  Sender: FDA-Public Use
  Company Number: CA-JNJFOC-20141019387

PATIENT
  Sex: Female
  Weight: 90 kg

DRUGS (10)
  1. CYMBALTA [Concomitant]
     Active Substance: DULOXETINE HYDROCHLORIDE
     Dosage: 60 (UNITS UNSPECIFIED)
     Route: 065
  2. ALTACE [Concomitant]
     Active Substance: RAMIPRIL
     Dosage: 25 (UNITS UNSPECIFIED)
     Route: 065
  3. NASONEX [Concomitant]
     Active Substance: MOMETASONE FUROATE
     Dosage: ALSO REPORTED AS AS NECESSARY
     Route: 065
  4. ADALAT CC [Concomitant]
     Active Substance: NIFEDIPINE
     Dosage: 30 (UNITS UNSPECIFIED)
     Route: 065
  5. LORAZEPAM. [Concomitant]
     Active Substance: LORAZEPAM
     Route: 065
  6. LYRICA [Concomitant]
     Active Substance: PREGABALIN
     Route: 065
  7. CALCIUM W/ VITAMIN D [Concomitant]
     Route: 065
  8. ECTOSONE [Concomitant]
     Dosage: ALSO REPORTED AS AS NECESSARY
     Route: 061
  9. REMICADE [Suspect]
     Active Substance: INFLIXIMAB
     Indication: CROHN^S DISEASE
     Route: 042
     Dates: start: 200408
  10. FLURAZEPAM [Concomitant]
     Active Substance: FLURAZEPAM\FLURAZEPAM HYDROCHLORIDE
     Dosage: 30 (UNITS UNSPECIFIED)
     Route: 065

REACTIONS (1)
  - Fibromyalgia [Unknown]

NARRATIVE: CASE EVENT DATE: 2006
